FAERS Safety Report 21336493 (Version 1)
Quarter: 2022Q3

REPORT INFORMATION
  Report Type: Spontaneous
  Country: DE (occurrence: DE)
  Receive Date: 20220915
  Receipt Date: 20220915
  Transmission Date: 20221027
  Serious: Yes (Other)
  Sender: FDA-Public Use
  Company Number: DE-MYLANLABS-2022M1089604

PATIENT

DRUGS (3)
  1. ATORVASTATIN [Suspect]
     Active Substance: ATORVASTATIN
     Indication: Product used for unknown indication
     Dosage: UNK
     Route: 065
  2. BETAHISTINE HYDROCHLORIDE [Suspect]
     Active Substance: BETAHISTINE HYDROCHLORIDE
     Indication: Meniere^s disease
     Dosage: UNK (FREQUENCY: 3-3-3-0 BY 2 UNIVERSITY CLINICS)
     Route: 048
     Dates: start: 202102
  3. BETAHISTINE HYDROCHLORIDE [Suspect]
     Active Substance: BETAHISTINE HYDROCHLORIDE
     Indication: Tinnitus

REACTIONS (3)
  - Transient ischaemic attack [Unknown]
  - Drug interaction [Unknown]
  - Overdose [Unknown]
